FAERS Safety Report 17048285 (Version 1)
Quarter: 2019Q4

REPORT INFORMATION
  Report Type: Spontaneous
  Country: US (occurrence: US)
  Receive Date: 20191116
  Receipt Date: 20191116
  Transmission Date: 20200122
  Serious: Yes (Disabling)
  Sender: FDA-Public Use
  Company Number: None

PATIENT
  Age: 35 Year
  Sex: Female
  Weight: 47.25 kg

DRUGS (2)
  1. NANOXYDE (IONIC SILVER OXIDANT SOLUTION) [Suspect]
     Active Substance: DIETARY SUPPLEMENT\SILVER
     Indication: IMPAIRED HEALING
     Dosage: ?          QUANTITY:2 DROP(S);?
     Route: 048
     Dates: start: 20180615, end: 20180627
  2. NANOXYDE (IONIC SILVER OXIDANT SOLUTION) [Suspect]
     Active Substance: DIETARY SUPPLEMENT\SILVER
     Indication: POST PROCEDURAL COMPLICATION
     Dosage: ?          QUANTITY:2 DROP(S);?
     Route: 048
     Dates: start: 20180615, end: 20180627

REACTIONS (6)
  - Skin injury [None]
  - Oral discomfort [None]
  - Skin wrinkling [None]
  - Gingival discomfort [None]
  - Eye irritation [None]
  - Skin atrophy [None]

NARRATIVE: CASE EVENT DATE: 20180627
